FAERS Safety Report 5107682-X (Version None)
Quarter: 2006Q3

REPORT INFORMATION
  Report Type: 
  Country: None (occurrence: None)
  Receive Date: 20060731
  Receipt Date: 20060406
  Transmission Date: 20061208
  Serious: No
  Sender: FDA-Public Use
  Company Number: 2006PV011662

PATIENT
  Age: 59 Year
  Sex: Female
  Weight: 75.2971 kg

DRUGS (4)
  1. BYETTA [Suspect]
     Indication: INSULIN RESISTANCE
     Dosage: SEE IMAGE
     Route: 058
     Dates: start: 20060223, end: 20060324
  2. BYETTA [Suspect]
     Indication: INSULIN RESISTANCE
     Dosage: SEE IMAGE
     Route: 058
     Dates: start: 20060325
  3. GLUCOPHAGE [Concomitant]
  4. AVANDIA [Concomitant]

REACTIONS (4)
  - CONSTIPATION [None]
  - ERUCTATION [None]
  - INCREASED APPETITE [None]
  - NAUSEA [None]
